FAERS Safety Report 8789320 (Version 2)
Quarter: 2012Q4

REPORT INFORMATION
  Report Type: Spontaneous
  Country: US (occurrence: None)
  Receive Date: 20120904
  Receipt Date: 20120913
  Transmission Date: 20130627
  Serious: No
  Sender: FDA-Public Use
  Company Number: ACO_31678_2012

PATIENT
  Age: 53 Year
  Sex: Male
  Weight: 45.4 kg

DRUGS (8)
  1. AMPYRA [Suspect]
     Indication: GAIT DISTURBANCE
     Dosage: Q 12 hrs
     Route: 048
     Dates: start: 2012
  2. DIAZEPAM [Concomitant]
  3. MIRTAZAPINE [Concomitant]
  4. DITROPAN (OXYBUTYNIN HYDROCHLORIDE) [Concomitant]
  5. EFFEXOR (VENLAFAXINE HYDROCHLORIDE) UNKNOWN [Concomitant]
  6. MACRODANTIN (NITROFURANTOIN) [Concomitant]
  7. FLOMAX (TAMSULOSIN HYDROCHLORIDE) [Concomitant]
  8. REQUIP (ROPINIROLE HYDROCHLORIDE) [Concomitant]

REACTIONS (7)
  - Abasia [None]
  - Fatigue [None]
  - Muscle spasticity [None]
  - Activities of daily living impaired [None]
  - Balance disorder [None]
  - Drug dose omission [None]
  - Impaired driving ability [None]
